FAERS Safety Report 5055871-5 (Version None)
Quarter: 2006Q3

REPORT INFORMATION
  Report Type: 
  Country: None (occurrence: None)
  Receive Date: 20060720
  Receipt Date: 20060710
  Transmission Date: 20061208
  Serious: Yes (Death, Life-Threatening, Hospitalization, Other)
  Sender: FDA-Public Use
  Company Number: US-JNJFOC-20051104999

PATIENT
  Sex: Female
  Weight: 99.79 kg

DRUGS (14)
  1. DURAGESIC-100 [Suspect]
     Route: 062
  2. DURAGESIC-100 [Suspect]
     Route: 062
  3. DURAGESIC-100 [Suspect]
     Route: 062
  4. DURAGESIC-100 [Suspect]
     Route: 062
  5. DURAGESIC-100 [Suspect]
     Indication: PAIN
     Route: 062
  6. CLOTRIMAZOLE [Concomitant]
  7. ESOMEPRAZOLE [Concomitant]
  8. FLUOXETINE [Concomitant]
     Route: 048
  9. FUROSEMIDE [Concomitant]
  10. PREDNISONE TAB [Concomitant]
     Dosage: 40 MG DAILY, ORAL
     Route: 048
  11. TRAZODONE HCL [Concomitant]
  12. CLOBETASOL PROPIONATE [Concomitant]
     Dosage: 0.05%, APPLIED DAILY
     Route: 061
  13. MORPHINE SULFATE [Concomitant]
     Dosage: 15 MG, 4 TO 5 EVERY 4 HOURS
     Route: 048
  14. CYCLOBENZAPRINE HCL [Concomitant]
     Route: 048

REACTIONS (14)
  - BRONCHITIS [None]
  - BRONCHOPNEUMONIA [None]
  - BURNS SECOND DEGREE [None]
  - CHEST PAIN [None]
  - COMA [None]
  - CONFUSIONAL STATE [None]
  - DEVICE LEAKAGE [None]
  - FATIGUE [None]
  - OVERDOSE [None]
  - PELVIC FRACTURE [None]
  - RESPIRATORY FAILURE [None]
  - SEPTIC SHOCK [None]
  - SOMNOLENCE [None]
  - URINARY INCONTINENCE [None]
